FAERS Safety Report 4435660-2 (Version None)
Quarter: 2004Q3

REPORT INFORMATION
  Report Type: 
  Country: None (occurrence: None)
  Receive Date: 20040726
  Receipt Date: 20040322
  Transmission Date: 20050211
  Serious: No
  Sender: FDA-Public Use
  Company Number: US_000848572

PATIENT
  Age: 59 Year
  Sex: Female
  Weight: 59 kg

DRUGS (15)
  1. EVISTA [Suspect]
     Indication: OSTEOPOROSIS
     Dosage: 60 MG/1DAY
  2. FORTEO [Suspect]
     Indication: OSTEOPOROSIS
     Dates: start: 20021101
  3. CORTEF [Concomitant]
  4. POTASSIUM [Concomitant]
  5. FLORINEF [Concomitant]
  6. TUMS [Concomitant]
  7. IRON [Concomitant]
  8. VITAMIN D [Concomitant]
  9. VITAMIN E [Concomitant]
  10. HYDROCORTISONE [Concomitant]
  11. HYDROCORTONE (HYDROCORTISONE) [Concomitant]
  12. SYNTHROID [Concomitant]
  13. VENTADUR (SALBUTAMOL SULFATE) [Concomitant]
  14. PRAVACHOL [Concomitant]
  15. ELAVIL [Concomitant]

REACTIONS (4)
  - ARTHRALGIA [None]
  - GROIN PAIN [None]
  - PAIN IN EXTREMITY [None]
  - WEIGHT INCREASED [None]
